FAERS Safety Report 10113454 (Version 1)
Quarter: 2014Q2

REPORT INFORMATION
  Report Type: Spontaneous
  Country: US (occurrence: US)
  Receive Date: 20140425
  Receipt Date: 20140425
  Transmission Date: 20141212
  Serious: Yes (Hospitalization)
  Sender: FDA-Public Use
  Company Number: US-BAYER-2014-059708

PATIENT
  Age: 41 Year
  Sex: Female
  Weight: 82.99 kg

DRUGS (4)
  1. YAZ [Suspect]
  2. BEYAZ [Suspect]
  3. LORTAB [Concomitant]
  4. PERCOCET [Concomitant]

REACTIONS (3)
  - Pulmonary embolism [None]
  - Pelvic venous thrombosis [None]
  - Deep vein thrombosis [Recovered/Resolved]
